FAERS Safety Report 6957015-9 (Version None)
Quarter: 2010Q3

REPORT INFORMATION
  Report Type: 
  Country: None (occurrence: None)
  Receive Date: 20100827
  Receipt Date: 20100827
  Transmission Date: 20110219
  Serious: Yes (Hospitalization)
  Sender: FDA-Public Use
  Company Number: None

PATIENT
  Age: 46 Year
  Sex: Female
  Weight: 81.6475 kg

DRUGS (1)
  1. INDOMETHACIN [Suspect]
     Indication: ARTHRITIS
     Dosage: 75 MG 2 TIMES DLY PO
     Route: 048
     Dates: start: 20080401, end: 20100115

REACTIONS (4)
  - CEREBROVASCULAR ACCIDENT [None]
  - DISORIENTATION [None]
  - DIZZINESS [None]
  - HEADACHE [None]
